FAERS Safety Report 8795848 (Version 2)
Quarter: 2012Q4

REPORT INFORMATION
  Report Type: 
  Country: US (occurrence: US)
  Receive Date: 20120919
  Receipt Date: 20121012
  Transmission Date: 20130627
  Serious: Yes (Hospitalization, Other)
  Sender: FDA-Public Use
  Company Number: US-CELGENEUS-163-20785-12081981

PATIENT
  Age: 71 None
  Sex: Female
  Weight: 50 kg

DRUGS (8)
  1. THALOMID [Suspect]
     Indication: MYELOMA
     Dosage: 50 Milligram
     Route: 048
     Dates: start: 20120308
  2. DECADRON [Concomitant]
     Indication: DRUG USE FOR UNKNOWN INDICATION
     Dosage: 20 Milligram
     Route: 065
  3. ZOMETA [Concomitant]
     Indication: DRUG USE FOR UNKNOWN INDICATION
     Dosage: 4 Milligram
     Route: 065
  4. LASIX [Concomitant]
     Indication: PULMONARY EDEMA
     Dosage: 20 Milligram
     Route: 065
  5. UNASYN [Concomitant]
     Indication: DRUG USE FOR UNKNOWN INDICATION
     Route: 065
  6. AUGMENTIN [Concomitant]
     Indication: HYPOXIA
     Route: 065
  7. OXYGEN [Concomitant]
     Indication: HYPOXIA
     Route: 065
  8. DOPAMINE [Concomitant]
     Indication: DRUG USE FOR UNKNOWN INDICATION
     Route: 065

REACTIONS (4)
  - Arrhythmia [Recovered/Resolved]
  - Respiratory arrest [Recovered/Resolved]
  - Pneumonia aspiration [Recovered/Resolved]
  - Plasma cell myeloma [Recovered/Resolved]
